FAERS Safety Report 9925796 (Version 1)
Quarter: 2014Q1

REPORT INFORMATION
  Report Type: Spontaneous
  Country: US (occurrence: US)
  Receive Date: 20140226
  Receipt Date: 20140226
  Transmission Date: 20141002
  Serious: Yes (Hospitalization, Other)
  Sender: FDA-Public Use
  Company Number: US-BAXTER-2014BAX008836

PATIENT
  Age: 62 Year
  Sex: Male

DRUGS (2)
  1. DIANEAL LOW CALCIUM [Suspect]
     Indication: RENAL FAILURE CHRONIC
     Route: 033
     Dates: start: 2008
  2. EXTRANEAL [Suspect]
     Indication: RENAL FAILURE CHRONIC
     Dosage: LAST FILL
     Route: 033
     Dates: start: 2008

REACTIONS (6)
  - Blood potassium increased [Recovering/Resolving]
  - Deafness unilateral [Recovering/Resolving]
  - Fall [Recovering/Resolving]
  - Skull fracture [Recovering/Resolving]
  - Bradycardia [Recovering/Resolving]
  - Loss of consciousness [Unknown]
